FAERS Safety Report 7342216-0 (Version None)
Quarter: 2011Q1

REPORT INFORMATION
  Report Type: 
  Country: None (occurrence: None)
  Receive Date: 20110310
  Receipt Date: 20110303
  Transmission Date: 20110831
  Serious: Yes (Other)
  Sender: FDA-Public Use
  Company Number: US-AMGEN-USASP2011012336

PATIENT
  Sex: Male

DRUGS (4)
  1. VENOFER [Concomitant]
     Dosage: UNK
  2. EPOGEN [Suspect]
     Dosage: 20000 IU, 3 TIMES/WK
  3. EPOGEN [Suspect]
     Indication: DIALYSIS
  4. COUMADIN [Concomitant]

REACTIONS (6)
  - RETICULOCYTE COUNT INCREASED [None]
  - THERAPEUTIC RESPONSE DECREASED [None]
  - METAL POISONING [None]
  - BLOOD TEST ABNORMAL [None]
  - IRON DEFICIENCY [None]
  - INTESTINAL POLYP [None]
